FAERS Safety Report 9831750 (Version 2)
Quarter: 2014Q2

REPORT INFORMATION
  Report Type: Spontaneous
  Country: US (occurrence: US)
  Receive Date: 20140121
  Receipt Date: 20140516
  Transmission Date: 20141212
  Serious: Yes (Other)
  Sender: FDA-Public Use
  Company Number: US-PFIZER INC-2014012564

PATIENT
  Age: 56 Year
  Sex: Male
  Weight: 100.23 kg

DRUGS (13)
  1. VIAGRA [Suspect]
     Dosage: ONE 100 MG ONCE A DAY AS NEEDED
     Route: 048
  2. ASPIRIN-81 [Concomitant]
     Dosage: 81 MG, 1X/DAY (1 TABLET )
  3. PEPCID [Concomitant]
     Indication: GASTROOESOPHAGEAL REFLUX DISEASE
     Dosage: 20 MG 1 TABLET TWICE A DAY AS NEEDED
  4. DOXAZOSIN MESILATE [Concomitant]
     Dosage: 2 MG, 1X/DAY (1 TABLET )
  5. METFORMIN HYDROCHLORIDE [Concomitant]
     Dosage: 1000 MG, 1 TABIET WITH MEALS TWICE A DAY
  6. LISINOPRIL [Concomitant]
     Dosage: 2.5 MG, 1X/DAY (1 TABLET )
  7. ATENOLOL [Concomitant]
     Dosage: 25 MG, 1X/DAY (1 TABLET)
  8. PERCOCET [Concomitant]
     Indication: PAIN
     Dosage: 10-325 MG 1 TABLET EVERY 6 HOURS AS NEEDED
  9. CRESTOR [Concomitant]
     Dosage: 20 MG 1 TABLET ONCE EACH NIGHT
  10. PLAVIX [Concomitant]
     Dosage: 75 MG 1 TABLET 1X/DAY
  11. HUMULIN [Concomitant]
     Dosage: 70/30 (70-30) 100 UNIT/ML SUSPENSION AS DIRECTED 2X/DAY ^40 UNITS IN^ AND 35 UNITS IN THE EVENING
  12. CIALIS [Concomitant]
     Dosage: 5 MG 1 TABLET EVERY 24 HOURS
  13. JANUVIA [Concomitant]
     Dosage: 100 MG, 1X/DAY

REACTIONS (6)
  - Acute sinusitis [Unknown]
  - Bronchitis [Unknown]
  - Constipation [Unknown]
  - Flatulence [Unknown]
  - Abdominal discomfort [Unknown]
  - Abdominal pain upper [Unknown]
